FAERS Safety Report 8045505-X (Version None)
Quarter: 2012Q1

REPORT INFORMATION
  Report Type: 
  Country: None (occurrence: None)
  Receive Date: 20120113
  Receipt Date: 20120106
  Transmission Date: 20120608
  Serious: Yes (Death, Hospitalization)
  Sender: FDA-Public Use
  Company Number: US-SANOFI-AVENTIS-2012SA001406

PATIENT

DRUGS (1)
  1. LANTUS [Suspect]
     Route: 058

REACTIONS (1)
  - DEATH [None]
